FAERS Safety Report 4291019-2 (Version None)
Quarter: 2004Q1

REPORT INFORMATION
  Report Type: 
  Country: None (occurrence: None)
  Receive Date: 20040209
  Receipt Date: 20040128
  Transmission Date: 20041129
  Serious: Yes (Hospitalization)
  Sender: FDA-Public Use
  Company Number: FR-JNJFOC-20031202155

PATIENT
  Age: 53 Year
  Sex: Male
  Weight: 69 kg

DRUGS (4)
  1. REMICADE [Suspect]
     Indication: ANKYLOSING SPONDYLITIS
     Dosage: SEE IMAGE          INTRAVENOUS
     Route: 042
     Dates: start: 20030709, end: 20030709
  2. REMICADE [Suspect]
     Indication: ANKYLOSING SPONDYLITIS
     Dosage: SEE IMAGE          INTRAVENOUS
     Route: 042
     Dates: start: 20030820, end: 20030820
  3. REMICADE [Suspect]
     Indication: ANKYLOSING SPONDYLITIS
     Dosage: SEE IMAGE          INTRAVENOUS
     Route: 042
     Dates: start: 20031008, end: 20031008
  4. IMMUNOSUPPRESSOR (IMMUNOSUPPRESSIVE AGENTS) [Concomitant]

REACTIONS (5)
  - FACIAL PALSY [None]
  - MENINGOENCEPHALITIS HERPETIC [None]
  - PARESIS [None]
  - VERTIGO [None]
  - VOMITING [None]
